FAERS Safety Report 6388221-2 (Version None)
Quarter: 2009Q4

REPORT INFORMATION
  Report Type: 
  Country: None (occurrence: None)
  Receive Date: 20091005
  Receipt Date: 20090930
  Transmission Date: 20100525
  Serious: Yes (Other)
  Sender: FDA-Public Use
  Company Number: JP-EISAI INC.-E2020-05174-SPO-JP

PATIENT
  Age: 86 Year
  Sex: Female

DRUGS (5)
  1. ARICEPT [Suspect]
     Indication: DEMENTIA
     Dosage: UNKNOWN
     Route: 048
     Dates: start: 20081006, end: 20090602
  2. ARICEPT [Suspect]
     Route: 048
     Dates: start: 20090603, end: 20090901
  3. EVISTA [Concomitant]
     Indication: OSTEOPOROSIS
     Route: 048
     Dates: start: 20090603
  4. CALFINA [Concomitant]
     Indication: OSTEOPOROSIS
     Route: 048
     Dates: start: 20090603
  5. ELSPRI [Concomitant]
     Indication: OSTEOPOROSIS
     Route: 048
     Dates: start: 20090603

REACTIONS (1)
  - ELECTROCARDIOGRAM QT PROLONGED [None]
